FAERS Safety Report 6573166-5 (Version None)
Quarter: 2010Q1

REPORT INFORMATION
  Report Type: 
  Country: None (occurrence: None)
  Receive Date: 20100208
  Receipt Date: 20100126
  Transmission Date: 20100710
  Serious: Yes (Hospitalization)
  Sender: FDA-Public Use
  Company Number: JP-BAYER-201010387BYL

PATIENT
  Age: 62 Year
  Sex: Male
  Weight: 65 kg

DRUGS (11)
  1. NEXAVAR [Suspect]
     Indication: HEPATIC NEOPLASM MALIGNANT
     Dosage: TOTAL DAILY DOSE: 800 MG  UNIT DOSE: 200 MG
     Route: 048
     Dates: start: 20090610, end: 20090701
  2. NEXAVAR [Suspect]
     Dosage: UNIT DOSE: 200 MG
     Route: 048
     Dates: start: 20090701, end: 20091120
  3. LIVACT [Concomitant]
     Dosage: SICNE BEFORE ADMINISTRATION
     Route: 048
  4. KINEDAK [Concomitant]
     Dosage: SICNE BEFORE ADMINISTRATION
     Route: 048
  5. ALDACTONE [Concomitant]
     Dosage: SICNE BEFORE ADMINISTRATION
     Route: 048
  6. DIART [Concomitant]
     Dosage: SICNE BEFORE ADMINISTRATION
     Route: 048
  7. OMEPRAL [Concomitant]
     Dosage: SICNE BEFORE ADMINISTRATION
     Route: 048
  8. GLAKAY [Concomitant]
     Dosage: SICNE BEFORE ADMINISTRATION
     Route: 048
  9. AMARYL [Concomitant]
     Dosage: SICNE BEFORE ADMINISTRATION
     Route: 048
  10. KERATINAMIN [Concomitant]
     Indication: PROPHYLAXIS
     Route: 061
     Dates: start: 20090617
  11. 5-FU [Concomitant]
     Route: 013
     Dates: start: 20090617, end: 20090701

REACTIONS (3)
  - DUODENAL ULCER [None]
  - GASTRIC ULCER [None]
  - HEPATIC FUNCTION ABNORMAL [None]
